FAERS Safety Report 13376668 (Version 2)
Quarter: 2017Q2

REPORT INFORMATION
  Report Type: Report from Study
  Country: US (occurrence: US)
  Receive Date: 20170328
  Receipt Date: 20170411
  Transmission Date: 20170830
  Serious: No
  Sender: FDA-Public Use
  Company Number: US-009507513-1703USA002575

PATIENT
  Sex: Female

DRUGS (1)
  1. NEXPLANON [Suspect]
     Active Substance: ETONOGESTREL
     Dosage: 1 IMPLANT, FOR 3 YEARS
     Route: 059
     Dates: start: 20160112

REACTIONS (7)
  - Sexual dysfunction [Recovered/Resolved]
  - Confusional state [Recovered/Resolved]
  - Implant site rash [Recovered/Resolved]
  - Metrorrhagia [Recovered/Resolved]
  - Frustration tolerance decreased [Recovered/Resolved]
  - Feeling abnormal [Recovered/Resolved]
  - Menstruation irregular [Unknown]

NARRATIVE: CASE EVENT DATE: 2016
